FAERS Safety Report 14176868 (Version 1)
Quarter: 2017Q4

REPORT INFORMATION
  Report Type: Report from Study
  Country: IL (occurrence: IL)
  Receive Date: 20171110
  Receipt Date: 20171110
  Transmission Date: 20180321
  Serious: Yes (Hospitalization)
  Sender: FDA-Public Use
  Company Number: IL-ROCHE-1909322

PATIENT
  Age: 80 Year
  Sex: Male
  Weight: 99 kg

DRUGS (9)
  1. STATOR [Concomitant]
     Indication: HYPERCHOLESTEROLAEMIA
     Route: 048
     Dates: start: 1997
  2. CLEXANE [Concomitant]
     Active Substance: ENOXAPARIN SODIUM
     Dosage: INDICATION: PREVENTION OF DEEP VEIN THROMBOSIS
     Route: 058
     Dates: start: 20170317, end: 20170319
  3. NORVASC [Concomitant]
     Active Substance: AMLODIPINE BESYLATE
     Indication: HYPERTENSION
     Route: 048
     Dates: start: 1997
  4. ASPIRIN. [Concomitant]
     Active Substance: ASPIRIN
     Dosage: INDICATION: PREVENTION OF HEART DISEASE
     Route: 048
     Dates: start: 20170317
  5. ATEZOLIZUMAB. [Suspect]
     Active Substance: ATEZOLIZUMAB
     Indication: TRANSITIONAL CELL CARCINOMA
     Dosage: THE MOST RECENT DOSE PRIOR TO ONSET OF FEVER 14/MAR/2017 AT 12:50
     Route: 042
     Dates: start: 20170314
  6. CARDILOC [Concomitant]
     Active Substance: BISOPROLOL FUMARATE
     Indication: HYPERTENSION
     Route: 048
     Dates: start: 1997
  7. OMEPRADEX [Concomitant]
     Active Substance: OMEPRAZOLE
     Indication: GASTROOESOPHAGEAL REFLUX DISEASE
     Route: 048
     Dates: start: 20170317
  8. BONDORMIN [Concomitant]
     Active Substance: BROTIZOLAM
     Indication: SLEEP DISORDER
     Route: 048
     Dates: start: 2014
  9. CALCILESS [Concomitant]
     Indication: HYPOPHOSPHATAEMIA
     Route: 048
     Dates: start: 20170317, end: 20170322

REACTIONS (2)
  - Urinary tract infection [Recovered/Resolved]
  - Influenza like illness [Recovered/Resolved]

NARRATIVE: CASE EVENT DATE: 20170315
